FAERS Safety Report 6871282-1 (Version None)
Quarter: 2010Q3

REPORT INFORMATION
  Report Type: 
  Country: None (occurrence: None)
  Receive Date: 20100723
  Receipt Date: 20100715
  Transmission Date: 20110219
  Serious: Yes (Other)
  Sender: FDA-Public Use
  Company Number: US-PFIZER INC-2010081972

PATIENT
  Sex: Male
  Weight: 115.7 kg

DRUGS (3)
  1. LIPITOR [Suspect]
     Indication: VASCULAR GRAFT
     Dosage: 10 MG, 2X/DAY
     Route: 048
     Dates: start: 20030101
  2. LIPITOR [Suspect]
     Dosage: 10 MG, 1X/DAY
     Route: 048
  3. LIPITOR [Suspect]
     Dosage: 40 MG, 2X/DAY
     Route: 048
     Dates: start: 20090101

REACTIONS (7)
  - ARTHRALGIA [None]
  - ASTHENIA [None]
  - BURNING SENSATION [None]
  - DIABETES MELLITUS [None]
  - HYPERTENSION [None]
  - PAIN [None]
  - PARAESTHESIA [None]
